FAERS Safety Report 23499283 (Version 2)
Quarter: 2024Q1

REPORT INFORMATION
  Report Type: Spontaneous
  Country: DE (occurrence: DE)
  Receive Date: 20240208
  Receipt Date: 20240226
  Transmission Date: 20240410
  Serious: Yes (Life-Threatening, Other)
  Sender: FDA-Public Use
  Company Number: DE-AMGEN-DEUSP2024021103

PATIENT

DRUGS (2)
  1. BEVACIZUMAB [Suspect]
     Active Substance: BEVACIZUMAB
     Indication: Hepatocellular carcinoma
     Dosage: UNK
     Route: 065
  2. ATEZOLIZUMAB [Suspect]
     Active Substance: ATEZOLIZUMAB
     Indication: Hepatocellular carcinoma
     Dosage: UNK
     Route: 065

REACTIONS (18)
  - Colitis [Unknown]
  - Cardiotoxicity [Unknown]
  - Nausea [Unknown]
  - Vomiting [Unknown]
  - Autoimmune hepatitis [Unknown]
  - Corneal graft rejection [Unknown]
  - Proteinuria [Unknown]
  - Hepatocellular carcinoma [Unknown]
  - Gastrointestinal haemorrhage [Unknown]
  - Pruritus [Unknown]
  - Rash [Unknown]
  - Drug effective for unapproved indication [Unknown]
  - Off label use [Unknown]
  - Therapy partial responder [Unknown]
  - Anaemia [Unknown]
  - Dyspnoea [Unknown]
  - Hypertension [Unknown]
  - Fatigue [Unknown]
